FAERS Safety Report 8356270-0 (Version None)
Quarter: 2012Q2

REPORT INFORMATION
  Report Type: 
  Country: None (occurrence: None)
  Receive Date: 20120510
  Receipt Date: 20120427
  Transmission Date: 20120825
  Serious: Yes (Other)
  Sender: FDA-Public Use
  Company Number: JPI-P-021167

PATIENT
  Age: 37 Year
  Sex: Male

DRUGS (4)
  1. MODAFINIL [Concomitant]
  2. GABAPENTIN [Concomitant]
  3. OXYCODONE AND ACETAMINOPHEN [Concomitant]
  4. XYREM [Suspect]
     Indication: NARCOLEPSY
     Dosage: UNKNOWN, ORAL
     Route: 048
     Dates: start: 20110301

REACTIONS (7)
  - CHEST DISCOMFORT [None]
  - WEIGHT DECREASED [None]
  - THERAPEUTIC RESPONSE DECREASED [None]
  - INITIAL INSOMNIA [None]
  - INTERVERTEBRAL DISC PROTRUSION [None]
  - FEELING JITTERY [None]
  - TERMINAL INSOMNIA [None]
